FAERS Safety Report 22641578 (Version 1)
Quarter: 2023Q2

REPORT INFORMATION
  Report Type: Spontaneous
  Country: US (occurrence: US)
  Receive Date: 20230626
  Receipt Date: 20230626
  Transmission Date: 20230722
  Serious: Yes (Other)
  Sender: FDA-Public Use
  Company Number: US-NATURESWAY-2023-US-017955

PATIENT
  Sex: 0

DRUGS (1)
  1. UMCKA COLDCARE CHERRY [Suspect]
     Active Substance: PELARGONIUM SIDOIDES ROOT
     Indication: Product used for unknown indication
     Dosage: UNKNOWN
     Route: 048

REACTIONS (1)
  - Optic ischaemic neuropathy [Unknown]
